FAERS Safety Report 19777846 (Version 1)
Quarter: 2021Q3

REPORT INFORMATION
  Report Type: Spontaneous
  Country: US (occurrence: US)
  Receive Date: 20210901
  Receipt Date: 20210901
  Transmission Date: 20211014
  Serious: Yes (Death)
  Sender: FDA-Public Use
  Company Number: None

PATIENT
  Age: 52 Year
  Sex: Female
  Weight: 109 kg

DRUGS (1)
  1. IBUPROFEN. [Suspect]
     Active Substance: IBUPROFEN
     Route: 048

REACTIONS (5)
  - Cardiac arrest [None]
  - Documented hypersensitivity to administered product [None]
  - Anaphylactic shock [None]
  - Brain injury [None]
  - Respiratory arrest [None]

NARRATIVE: CASE EVENT DATE: 20210505
